FAERS Safety Report 23313641 (Version 2)
Quarter: 2023Q4

REPORT INFORMATION
  Report Type: Report from Study
  Country: KR (occurrence: KR)
  Receive Date: 20231219
  Receipt Date: 20231222
  Transmission Date: 20240109
  Serious: Yes (Other)
  Sender: FDA-Public Use
  Company Number: KR-002147023-NVSC2023KR267412

PATIENT
  Age: 65 Year
  Sex: Male

DRUGS (1)
  1. BEOVU [Suspect]
     Active Substance: BROLUCIZUMAB-DBLL
     Indication: Neovascular age-related macular degeneration
     Dosage: UNK
     Route: 031
     Dates: start: 20221124, end: 20221124

REACTIONS (5)
  - Iridocyclitis [Recovered/Resolved with Sequelae]
  - Anterior chamber inflammation [Not Recovered/Not Resolved]
  - Corneal oedema [Not Recovered/Not Resolved]
  - Visual acuity reduced [Unknown]
  - Vitreous opacities [Not Recovered/Not Resolved]

NARRATIVE: CASE EVENT DATE: 20230106
